FAERS Safety Report 25242755 (Version 1)
Quarter: 2025Q2

REPORT INFORMATION
  Report Type: Report from Study
  Country: US (occurrence: US)
  Receive Date: 20250427
  Receipt Date: 20250427
  Transmission Date: 20250716
  Serious: Yes (Hospitalization)
  Sender: ABBVIE
  Company Number: US-ABBVIE-6244421

PATIENT
  Age: 27 Year
  Sex: Female

DRUGS (1)
  1. RINVOQ [Suspect]
     Active Substance: UPADACITINIB
     Indication: Dermatitis atopic
     Route: 048
     Dates: start: 20250219

REACTIONS (1)
  - Psychiatric care [Recovering/Resolving]

NARRATIVE: CASE EVENT DATE: 20250421
